FAERS Safety Report 23015132 (Version 1)
Quarter: 2023Q4

REPORT INFORMATION
  Report Type: Report from Study
  Country: US (occurrence: US)
  Receive Date: 20231002
  Receipt Date: 20231002
  Transmission Date: 20240109
  Serious: Yes (Other)
  Sender: FDA-Public Use
  Company Number: US-OTSUKA-2023_025524

PATIENT
  Sex: Female

DRUGS (1)
  1. BREXPIPRAZOLE [Suspect]
     Active Substance: BREXPIPRAZOLE
     Indication: Major depression
     Dosage: 2 MG, QD (2 TABLETS OF 1 MG)
     Route: 065

REACTIONS (4)
  - Hallucination, auditory [Unknown]
  - Depressive symptom [Unknown]
  - Withdrawal syndrome [Unknown]
  - Product use issue [Unknown]
